FAERS Safety Report 4764714-6 (Version None)
Quarter: 2005Q3

REPORT INFORMATION
  Report Type: 
  Country: None (occurrence: None)
  Receive Date: 20050909
  Receipt Date: 20050311
  Transmission Date: 20060218
  Serious: Yes (Hospitalization, Disabling)
  Sender: FDA-Public Use
  Company Number: US-MERCK-0503USA02561

PATIENT
  Age: 47 Year
  Sex: Female
  Weight: 85 kg

DRUGS (8)
  1. VIOXX [Suspect]
     Indication: BACK INJURY
     Route: 048
     Dates: start: 20000101, end: 20030901
  2. VIOXX [Suspect]
     Route: 048
  3. ULTRAM [Concomitant]
     Indication: BACK PAIN
     Route: 065
     Dates: start: 20000101
  4. PERSANTINE [Concomitant]
     Route: 065
  5. NEURONTIN [Concomitant]
     Route: 065
  6. STADOL [Concomitant]
     Indication: PAIN
     Route: 065
     Dates: start: 19940101
  7. METHADONE HYDROCHLORIDE [Concomitant]
     Indication: PAIN
     Route: 065
  8. IBUPROFEN [Concomitant]
     Indication: PAIN
     Route: 065

REACTIONS (36)
  - ANAEMIA [None]
  - ANIMAL BITE [None]
  - ANXIETY [None]
  - BACK INJURY [None]
  - BACK PAIN [None]
  - BRONCHITIS [None]
  - BUNDLE BRANCH BLOCK LEFT [None]
  - CAROTID ARTERY OCCLUSION [None]
  - CAROTID ARTERY STENOSIS [None]
  - CELLULITIS [None]
  - CEREBRAL INFARCTION [None]
  - CEREBROVASCULAR ACCIDENT [None]
  - CHILLS [None]
  - DIABETES MELLITUS INADEQUATE CONTROL [None]
  - DIABETES MELLITUS NON-INSULIN-DEPENDENT [None]
  - DRUG HYPERSENSITIVITY [None]
  - EMBOLISM [None]
  - FLUID RETENTION [None]
  - GLIOSIS [None]
  - HAEMORRHOIDS [None]
  - HIDRADENITIS [None]
  - HYPERCHOLESTEROLAEMIA [None]
  - HYPERTENSION [None]
  - LICE INFESTATION [None]
  - LIPIDS ABNORMAL [None]
  - MENOPAUSAL SYMPTOMS [None]
  - MILD MENTAL RETARDATION [None]
  - PILONIDAL CYST [None]
  - PYREXIA [None]
  - RESPIRATORY TRACT INFECTION [None]
  - RETINAL DISORDER [None]
  - SHOULDER PAIN [None]
  - VIRAL MYOCARDITIS [None]
  - VIRAL PHARYNGITIS [None]
  - VIRAL UPPER RESPIRATORY TRACT INFECTION [None]
  - VOMITING [None]
